FAERS Safety Report 18328678 (Version 1)
Quarter: 2020Q3

REPORT INFORMATION
  Report Type: Spontaneous
  Country: US (occurrence: US)
  Receive Date: 20200929
  Receipt Date: 20200929
  Transmission Date: 20201103
  Serious: Yes (Other)
  Sender: FDA-Public Use
  Company Number: None

PATIENT
  Age: 33 Year
  Sex: Female
  Weight: 55.34 kg

DRUGS (1)
  1. INVEGA SUSTENNA [Suspect]
     Active Substance: PALIPERIDONE PALMITATE
     Indication: SCHIZOAFFECTIVE DISORDER
     Dosage: ?          OTHER STRENGTH:560MG, 230MG, 3.52;QUANTITY:1 DF DOSAGE FORM;OTHER FREQUENCY:ONE DOSE ONE WEEK ;?
     Dates: start: 20200613, end: 20200818

REACTIONS (14)
  - Palpitations [None]
  - Swelling [None]
  - Dyspnoea [None]
  - Cognitive disorder [None]
  - Infusion related hypersensitivity reaction [None]
  - Swelling face [None]
  - Speech disorder [None]
  - Dizziness [None]
  - Confusional state [None]
  - Urticaria [None]
  - Photosensitivity reaction [None]
  - Fluid retention [None]
  - Weight increased [None]
  - Injection site swelling [None]

NARRATIVE: CASE EVENT DATE: 20200618
